FAERS Safety Report 4404258-4 (Version None)
Quarter: 2004Q3

REPORT INFORMATION
  Report Type: 
  Country: None (occurrence: None)
  Receive Date: 20040719
  Receipt Date: 20040705
  Transmission Date: 20050211
  Serious: Yes (Hospitalization)
  Sender: FDA-Public Use
  Company Number: 8006693

PATIENT
  Age: 41 Year
  Sex: Female
  Weight: 59 kg

DRUGS (6)
  1. KEPPRA [Suspect]
     Dosage: D PO
     Route: 048
     Dates: end: 20040531
  2. DI-ANTALVIC [Concomitant]
  3. MUCOMYST [Concomitant]
  4. VOGALENE [Concomitant]
  5. OMEPRAZOLE [Concomitant]
  6. SOLUPRED [Concomitant]

REACTIONS (4)
  - APHASIA [None]
  - CONFUSIONAL STATE [None]
  - HYPONATRAEMIA [None]
  - TREMOR [None]
